FAERS Safety Report 21099891 (Version 1)
Quarter: 2022Q3

REPORT INFORMATION
  Report Type: Report from Study
  Country: FR (occurrence: None)
  Receive Date: 20220719
  Receipt Date: 20220719
  Transmission Date: 20221027
  Serious: Yes (Hospitalization, Other)
  Sender: FDA-Public Use
  Company Number: FR-Eisai Medical Research-EC-2022-118953

PATIENT
  Sex: Female

DRUGS (3)
  1. LENVIMA [Suspect]
     Active Substance: LENVATINIB
     Indication: Endometrial cancer
     Dosage: DOSE UNKNOWN
     Route: 048
     Dates: start: 20220519, end: 2022
  2. LENVIMA [Suspect]
     Active Substance: LENVATINIB
     Dosage: DOSE REDUCTION
     Route: 048
     Dates: start: 2022
  3. KEYTRUDA [Suspect]
     Active Substance: PEMBROLIZUMAB
     Indication: Endometrial cancer
     Dosage: DOSE UNKNOWN
     Route: 041
     Dates: start: 20220519, end: 2022

REACTIONS (8)
  - General physical health deterioration [Recovering/Resolving]
  - Acute kidney injury [Unknown]
  - Diarrhoea [Unknown]
  - Fall [Unknown]
  - Cough [Unknown]
  - Leukopenia [Unknown]
  - Thrombocytopenia [Unknown]
  - Urinary incontinence [Unknown]

NARRATIVE: CASE EVENT DATE: 20220101
